FAERS Safety Report 24524207 (Version 1)
Quarter: 2024Q4

REPORT INFORMATION
  Report Type: Spontaneous
  Country: CA (occurrence: CA)
  Receive Date: 20241018
  Receipt Date: 20241018
  Transmission Date: 20250114
  Serious: Yes (Other)
  Sender: TEVA
  Company Number: CA-TEVA-VS-3252604

PATIENT
  Age: 14 Year
  Sex: Female

DRUGS (6)
  1. CISPLATIN [Suspect]
     Active Substance: CISPLATIN
     Indication: Epithelioid mesothelioma
     Dosage: TIME INTERVAL: CYCLICAL
     Route: 042
  2. PREDNISOLONE [Concomitant]
     Active Substance: PREDNISOLONE
     Indication: Product used for unknown indication
  3. NIVOLUMAB [Suspect]
     Active Substance: NIVOLUMAB
     Indication: Epithelioid mesothelioma
     Dosage: TIME INTERVAL: CYCLICAL: SOLUTION INTRAVENOUS
     Route: 065
  4. YERVOY [Suspect]
     Active Substance: IPILIMUMAB
     Indication: Epithelioid mesothelioma
     Dosage: TIME INTERVAL: CYCLICAL: YERVOY FOR I.V. INFUSION ONLY. 50MG/10ML AND 200MG/40 ML SINGLE USE VIAL...
     Route: 065
  5. NAPROXEN [Suspect]
     Active Substance: NAPROXEN
     Indication: Arthritis
     Route: 065
  6. NAPROXEN [Suspect]
     Active Substance: NAPROXEN
     Indication: Arthritis
     Route: 065

REACTIONS (8)
  - Anaphylactic reaction [Unknown]
  - Investigation [Unknown]
  - Rheumatoid factor [Unknown]
  - Serology test [Unknown]
  - Arthritis [Unknown]
  - Antinuclear antibody [Unknown]
  - Physical examination [Unknown]
  - Gastrointestinal disorder [Unknown]
